FAERS Safety Report 6639029-1 (Version None)
Quarter: 2010Q1

REPORT INFORMATION
  Report Type: 
  Country: None (occurrence: None)
  Receive Date: 20100317
  Receipt Date: 20100308
  Transmission Date: 20100710
  Serious: Yes (Hospitalization)
  Sender: FDA-Public Use
  Company Number: FR-ASTRAZENECA-2010SE10394

PATIENT
  Age: 606 Month
  Sex: Female

DRUGS (3)
  1. NEXIUM [Suspect]
     Indication: ABDOMINAL PAIN
     Route: 048
     Dates: start: 20091101
  2. SPASFON LYOC [Suspect]
     Indication: ABDOMINAL PAIN
     Route: 048
  3. PEPCIDUO [Suspect]
     Route: 048
     Dates: start: 20091101

REACTIONS (2)
  - DYSPHAGIA [None]
  - LIP OEDEMA [None]
